FAERS Safety Report 4777886-4 (Version None)
Quarter: 2005Q3

REPORT INFORMATION
  Report Type: 
  Country: None (occurrence: None)
  Receive Date: 20050921
  Receipt Date: 20050824
  Transmission Date: 20060218
  Serious: Yes (Other)
  Sender: FDA-Public Use
  Company Number: 2005120160

PATIENT
  Age: 54 Year
  Sex: Male

DRUGS (1)
  1. SILDENAFIL CITRATE [Suspect]
     Indication: ERECTILE DYSFUNCTION
     Dosage: 200 MG

REACTIONS (8)
  - BLINDNESS UNILATERAL [None]
  - INTENTIONAL MISUSE [None]
  - INTRAOCULAR PRESSURE INCREASED [None]
  - OPTIC ATROPHY [None]
  - OPTIC ISCHAEMIC NEUROPATHY [None]
  - OPTIC NERVE CUP/DISC RATIO DECREASED [None]
  - PAPILLOEDEMA [None]
  - RETINAL ARTERY OCCLUSION [None]
